FAERS Safety Report 25196649 (Version 1)
Quarter: 2025Q2

REPORT INFORMATION
  Report Type: Other
  Country: IR (occurrence: IR)
  Receive Date: 20250415
  Receipt Date: 20250415
  Transmission Date: 20250717
  Serious: Yes (Life-Threatening, Hospitalization)
  Sender: OWLPHARMA CONSULTING
  Company Number: IR-Owlpharma Consulting, Lda.-2174908

PATIENT
  Age: 62 Year
  Sex: Male

DRUGS (5)
  1. PYRIDOSTIGMINE BROMIDE [Suspect]
     Active Substance: PYRIDOSTIGMINE BROMIDE
     Indication: Myasthenia gravis
  2. FENTANYL [Suspect]
     Active Substance: FENTANYL
  3. ATRACURIUM [Suspect]
     Active Substance: ATRACURIUM
  4. THIOPENTAL SODIUM [Suspect]
     Active Substance: THIOPENTAL SODIUM
  5. ISOFLURANE [Suspect]
     Active Substance: ISOFLURANE

REACTIONS (2)
  - Atrioventricular block second degree [Recovering/Resolving]
  - Potentiating drug interaction [Unknown]
